FAERS Safety Report 9751458 (Version 2)
Quarter: 2013Q4

REPORT INFORMATION
  Report Type: Spontaneous
  Country: ES (occurrence: ES)
  Receive Date: 20131212
  Receipt Date: 20131212
  Transmission Date: 20140711
  Serious: Yes (Other)
  Sender: FDA-Public Use
  Company Number: ES-ABBVIE-12P-144-0975895-00

PATIENT
  Age: 29 Year
  Sex: Female

DRUGS (2)
  1. HUMIRA [Suspect]
     Indication: SPONDYLITIS
  2. HUMIRA [Suspect]
     Dates: start: 20120418, end: 20120809

REACTIONS (1)
  - Subacute cutaneous lupus erythematosus [Recovered/Resolved]
